FAERS Safety Report 5059993-4 (Version None)
Quarter: 2006Q3

REPORT INFORMATION
  Report Type: 
  Country: None (occurrence: None)
  Receive Date: 20060724
  Receipt Date: 20060717
  Transmission Date: 20061208
  Serious: Yes (Other)
  Sender: FDA-Public Use
  Company Number: US-GLAXOSMITHKLINE-A0612438A

PATIENT
  Age: 76 Year
  Sex: Female

DRUGS (3)
  1. ECOTRIN MAXIMUM STRENGTH TABLETS [Suspect]
     Indication: ARTHRITIS
     Route: 048
  2. HUMALOG [Concomitant]
  3. DYAZIDE [Concomitant]

REACTIONS (2)
  - CHOKING [None]
  - VOMITING [None]
